FAERS Safety Report 6083618-2 (Version None)
Quarter: 2009Q1

REPORT INFORMATION
  Report Type: 
  Country: None (occurrence: None)
  Receive Date: 20090219
  Receipt Date: 20090217
  Transmission Date: 20090719
  Serious: Yes (Hospitalization, Other)
  Sender: FDA-Public Use
  Company Number: US-BRISTOL-MYERS SQUIBB COMPANY-14473433

PATIENT
  Age: 71 Year
  Sex: Female
  Weight: 109 kg

DRUGS (2)
  1. COUMADIN [Suspect]
     Dates: end: 20081206
  2. ENOXAPARIN SODIUM [Suspect]
     Indication: COAGULOPATHY
     Dates: start: 20081125, end: 20081206

REACTIONS (4)
  - DEPRESSED LEVEL OF CONSCIOUSNESS [None]
  - EYE ROLLING [None]
  - HYPOTENSION [None]
  - INJECTION SITE HAEMATOMA [None]
